FAERS Safety Report 12779361 (Version 1)
Quarter: 2016Q3

REPORT INFORMATION
  Report Type: Spontaneous
  Country: US (occurrence: US)
  Receive Date: 20160926
  Receipt Date: 20160926
  Transmission Date: 20161109
  Serious: No
  Sender: FDA-Public Use
  Company Number: US-TEVA-685391USA

PATIENT
  Age: 54 Year
  Sex: Female

DRUGS (4)
  1. MUTI VIT [Concomitant]
  2. COPAXONE [Suspect]
     Active Substance: GLATIRAMER ACETATE
     Indication: MULTIPLE SCLEROSIS
     Route: 058
     Dates: start: 201407
  3. ACYCLOVIR. [Concomitant]
     Active Substance: ACYCLOVIR
  4. VIT 3 [Concomitant]

REACTIONS (1)
  - Musculoskeletal discomfort [Unknown]

NARRATIVE: CASE EVENT DATE: 201607
